FAERS Safety Report 4322356-0 (Version None)
Quarter: 2004Q1

REPORT INFORMATION
  Report Type: 
  Country: None (occurrence: None)
  Receive Date: 20040322
  Receipt Date: 20040322
  Transmission Date: 20041129
  Serious: Yes (Hospitalization)
  Sender: FDA-Public Use
  Company Number: None

PATIENT
  Age: 34 Year
  Sex: Female

DRUGS (1)
  1. DEXMETHYLPHENIDATE [Suspect]
     Dosage: 5 MG THREE BID PO
     Route: 048
     Dates: start: 20020715

REACTIONS (8)
  - BRAIN OEDEMA [None]
  - DIZZINESS [None]
  - DYSARTHRIA [None]
  - FALL [None]
  - HEAD INJURY [None]
  - HEMIPARESIS [None]
  - LOSS OF CONSCIOUSNESS [None]
  - SYNCOPE [None]
